FAERS Safety Report 19635089 (Version 1)
Quarter: 2021Q3

REPORT INFORMATION
  Report Type: Spontaneous
  Country: CN (occurrence: CN)
  Receive Date: 20210730
  Receipt Date: 20210730
  Transmission Date: 20211014
  Serious: Yes (Other)
  Sender: FDA-Public Use
  Company Number: CN-ROCHE-2878436

PATIENT
  Age: 80 Year

DRUGS (15)
  1. VINCRISTINE [Concomitant]
     Active Substance: VINCRISTINE
     Indication: MANTLE CELL LYMPHOMA
     Dosage: R?MINI CHOP X 4
  2. VINCRISTINE [Concomitant]
     Active Substance: VINCRISTINE
     Dosage: R?CVP X 2
  3. RITUXIMAB. [Suspect]
     Active Substance: RITUXIMAB
     Dosage: BRX2
     Route: 065
  4. RITUXIMAB. [Suspect]
     Active Substance: RITUXIMAB
     Dosage: R?BAC X6
     Route: 065
  5. RITUXIMAB. [Suspect]
     Active Substance: RITUXIMAB
     Indication: MANTLE CELL LYMPHOMA
     Dosage: R?MINI CHOP X 4
     Route: 065
  6. RITUXIMAB. [Suspect]
     Active Substance: RITUXIMAB
     Dosage: R?CVP X 2
     Route: 065
  7. PREDNISONE. [Concomitant]
     Active Substance: PREDNISONE
     Dosage: R?CVP X 2
  8. BENDAMUSTINE [Concomitant]
     Active Substance: BENDAMUSTINE
     Indication: MANTLE CELL LYMPHOMA
     Dosage: R?BACX6
  9. RITUXIMAB. [Suspect]
     Active Substance: RITUXIMAB
     Dosage: RX5
     Route: 065
     Dates: start: 201902
  10. CYCLOPHOSPHAMIDE. [Concomitant]
     Active Substance: CYCLOPHOSPHAMIDE
     Indication: MANTLE CELL LYMPHOMA
     Dosage: R?MINI CHOP X 4
  11. PREDNISONE. [Concomitant]
     Active Substance: PREDNISONE
     Indication: MANTLE CELL LYMPHOMA
     Dosage: R?MINI CHOP X 4
  12. CYCLOPHOSPHAMIDE. [Concomitant]
     Active Substance: CYCLOPHOSPHAMIDE
     Dosage: R?CVP X 2
  13. CYTARABINE. [Concomitant]
     Active Substance: CYTARABINE
     Indication: MANTLE CELL LYMPHOMA
     Dosage: R?BACX6
  14. DOXORUBICIN [Concomitant]
     Active Substance: DOXORUBICIN
     Indication: MANTLE CELL LYMPHOMA
     Dosage: R?MINI CHOP X 4
  15. BENDAMUSTINE [Concomitant]
     Active Substance: BENDAMUSTINE
     Dosage: BRX2

REACTIONS (4)
  - Myelosuppression [Unknown]
  - Pneumonitis [Unknown]
  - Venous thrombosis [Unknown]
  - Off label use [Unknown]
